FAERS Safety Report 25807886 (Version 1)
Quarter: 2025Q3

REPORT INFORMATION
  Report Type: Spontaneous
  Country: US (occurrence: US)
  Receive Date: 20250916
  Receipt Date: 20250916
  Transmission Date: 20251020
  Serious: No
  Sender: ROCHE
  Company Number: US-ROCHE-10000382457

PATIENT
  Sex: Male

DRUGS (2)
  1. XOLAIR [Suspect]
     Active Substance: OMALIZUMAB
     Indication: Product used for unknown indication
     Route: 058
  2. XOLAIR [Suspect]
     Active Substance: OMALIZUMAB
     Route: 058

REACTIONS (8)
  - Wrong technique in product usage process [Unknown]
  - Product quality issue [Unknown]
  - Device delivery system issue [Unknown]
  - Device issue [Unknown]
  - Skin mass [Unknown]
  - Liquid product physical issue [Unknown]
  - Inadvertent injection air bubble [Unknown]
  - Needle issue [Unknown]
